FAERS Safety Report 26113315 (Version 1)
Quarter: 2025Q4

REPORT INFORMATION
  Report Type: Report from Study
  Country: GB (occurrence: GB)
  Receive Date: 20251202
  Receipt Date: 20251202
  Transmission Date: 20260118
  Serious: Yes (Death)
  Sender: ABBVIE
  Company Number: GB-ABBVIE-6571851

PATIENT
  Sex: Female

DRUGS (1)
  1. HUMIRA [Suspect]
     Active Substance: ADALIMUMAB
     Indication: Psoriatic arthropathy
     Dosage: DOSE: HUMIRA 40MG/0.4ML ?FOA: SOLUTION FOR INJECTION PRE-FILLED PENS 2 PRE-FILLED DISPOSABLE INJE...
     Route: 058

REACTIONS (1)
  - Death [Fatal]
